FAERS Safety Report 7842254-5 (Version None)
Quarter: 2011Q4

REPORT INFORMATION
  Report Type: 
  Country: None (occurrence: None)
  Receive Date: 20111025
  Receipt Date: 20111020
  Transmission Date: 20120403
  Serious: Yes (Hospitalization, Other)
  Sender: FDA-Public Use
  Company Number: JP-PFIZER INC-2011234494

PATIENT

DRUGS (1)
  1. VARENICLINE TARTRATE [Suspect]
     Dosage: UNK
     Route: 048
     Dates: start: 20110701, end: 20110909

REACTIONS (3)
  - CONVULSION [None]
  - CEREBELLOPONTINE ANGLE TUMOUR [None]
  - LOSS OF CONSCIOUSNESS [None]
